FAERS Safety Report 25766382 (Version 1)
Quarter: 2025Q3

REPORT INFORMATION
  Report Type: Spontaneous
  Country: CN (occurrence: CN)
  Receive Date: 20250905
  Receipt Date: 20250905
  Transmission Date: 20251021
  Serious: Yes (Other)
  Sender: ACCORD
  Company Number: CN-Accord-502300

PATIENT
  Age: 53 Year
  Sex: Male

DRUGS (4)
  1. GEMCITABINE [Suspect]
     Active Substance: GEMCITABINE
     Indication: Cutaneous T-cell lymphoma stage IV
     Dates: start: 202105, end: 202110
  2. VINORELBINE [Suspect]
     Active Substance: VINORELBINE TARTRATE
     Indication: Cutaneous T-cell lymphoma stage IV
     Dates: start: 202105, end: 202110
  3. DOXORUBICIN HYDROCHLORIDE [Suspect]
     Active Substance: DOXORUBICIN HYDROCHLORIDE
     Indication: Cutaneous T-cell lymphoma stage IV
     Dates: start: 202105, end: 202110
  4. DEXAMETHASONE [Suspect]
     Active Substance: DEXAMETHASONE
     Indication: Cutaneous T-cell lymphoma stage IV
     Dates: start: 202105, end: 202110

REACTIONS (6)
  - Pneumonia bacterial [Unknown]
  - Pneumonia fungal [Unknown]
  - Deep vein thrombosis [Unknown]
  - Skin infection [Unknown]
  - Staphylococcal infection [Unknown]
  - Bacterial infection [Unknown]

NARRATIVE: CASE EVENT DATE: 20210101
